FAERS Safety Report 6315714-6 (Version None)
Quarter: 2009Q3

REPORT INFORMATION
  Report Type: 
  Country: None (occurrence: None)
  Receive Date: 20090818
  Receipt Date: 20090807
  Transmission Date: 20100115
  Serious: Yes (Other)
  Sender: FDA-Public Use
  Company Number: IPS_01728_2009

PATIENT
  Sex: Male

DRUGS (1)
  1. APOKYN [Suspect]
     Indication: DRUG USE FOR UNKNOWN INDICATION
     Dosage: (0.2 ML, FREQUENCY UNKNOWN SUBCUTANEOUS)
     Route: 058

REACTIONS (9)
  - BLOOD PRESSURE DECREASED [None]
  - BLOOD PRESSURE SYSTOLIC INCREASED [None]
  - DEPRESSION [None]
  - FALL [None]
  - HEADACHE [None]
  - MUSCULOSKELETAL PAIN [None]
  - NERVOUSNESS [None]
  - PALPITATIONS [None]
  - RIB FRACTURE [None]
